FAERS Safety Report 9194006 (Version 2)
Quarter: 2013Q2

REPORT INFORMATION
  Report Type: Report from Study
  Country: US (occurrence: US)
  Receive Date: 20130327
  Receipt Date: 20130405
  Transmission Date: 20140414
  Serious: Yes (Hospitalization, Other)
  Sender: FDA-Public Use
  Company Number: US-BAXTER-2013BAX010925

PATIENT
  Sex: Female

DRUGS (1)
  1. ARALAST NP [Suspect]
     Indication: ALPHA-1 ANTI-TRYPSIN DEFICIENCY
     Route: 042

REACTIONS (5)
  - Dehydration [Not Recovered/Not Resolved]
  - Respiratory disorder [Not Recovered/Not Resolved]
  - Wrist fracture [Not Recovered/Not Resolved]
  - Drug dose omission [Recovered/Resolved]
  - Infection [Not Recovered/Not Resolved]
